FAERS Safety Report 8237272-1 (Version None)
Quarter: 2012Q1

REPORT INFORMATION
  Report Type: 
  Country: None (occurrence: None)
  Receive Date: 20120327
  Receipt Date: 20120327
  Transmission Date: 20120608
  Serious: No
  Sender: FDA-Public Use
  Company Number: None

PATIENT
  Age: 45 Year
  Sex: Female
  Weight: 72.574 kg

DRUGS (1)
  1. SAPHRIS [Suspect]
     Indication: BIPOLAR DISORDER
     Dosage: 10 MG
     Route: 060
     Dates: start: 20120320, end: 20120320

REACTIONS (9)
  - SUDDEN ONSET OF SLEEP [None]
  - DYSARTHRIA [None]
  - DIZZINESS [None]
  - GAIT DISTURBANCE [None]
  - MUSCLE TWITCHING [None]
  - MUSCLE SPASMS [None]
  - DYSKINESIA [None]
  - DYSSTASIA [None]
  - VISION BLURRED [None]
